FAERS Safety Report 7740651-X (Version None)
Quarter: 2011Q3

REPORT INFORMATION
  Report Type: 
  Country: None (occurrence: None)
  Receive Date: 20110909
  Receipt Date: 20110822
  Transmission Date: 20111222
  Serious: No
  Sender: FDA-Public Use
  Company Number: KE-MERCK-1107USA03496

PATIENT
  Sex: Female

DRUGS (3)
  1. SYMBICORT [Concomitant]
     Route: 065
  2. PRIMAXIN [Suspect]
     Route: 042
  3. FEXOFENADINE HCL [Concomitant]
     Route: 065

REACTIONS (5)
  - PRURITUS [None]
  - RASH [None]
  - SCRATCH [None]
  - URTICARIA [None]
  - SKIN REACTION [None]
